FAERS Safety Report 6723916-X (Version None)
Quarter: 2010Q2

REPORT INFORMATION
  Report Type: 
  Country: None (occurrence: None)
  Receive Date: 20100513
  Receipt Date: 20100505
  Transmission Date: 20101027
  Serious: Yes (Hospitalization)
  Sender: FDA-Public Use
  Company Number: DE-ROCHE-699322

PATIENT
  Sex: Female

DRUGS (11)
  1. PEGINTERFERON ALFA-2A [Suspect]
     Dosage: TOTAL DURATION REPORTED: 205 DAYS
     Route: 058
     Dates: start: 20090521, end: 20091029
  2. PEGINTERFERON ALFA-2A [Suspect]
     Route: 058
     Dates: start: 20091105
  3. PEGINTERFERON ALFA-2A [Suspect]
     Route: 058
     Dates: end: 20091211
  4. RIBAVIRIN [Suspect]
     Dosage: TOTAL DURATION REPORTED: 211 DAYS
     Route: 048
     Dates: start: 20090520, end: 20091104
  5. RIBAVIRIN [Suspect]
     Route: 048
     Dates: start: 20091105
  6. RIBAVIRIN [Suspect]
     Route: 048
     Dates: end: 20091216
  7. BLINDED ELTROMBOPAG [Suspect]
     Indication: THROMBOCYTOPENIA
     Dosage: DOSE BLINDED, VARIABLE DOSES DAILY, TOTAL DURATION REPORTED: 211 DAYS
     Route: 048
     Dates: start: 20090520, end: 20090901
  8. BLINDED ELTROMBOPAG [Suspect]
     Dosage: DOSE BLINDED.
     Route: 048
     Dates: start: 20090902
  9. BLINDED ELTROMBOPAG [Suspect]
     Route: 048
     Dates: end: 20091216
  10. ELTROMBOPAG [Suspect]
     Indication: THROMBOCYTOPENIA
     Dosage: VARIABLE DOSES DAILY, TOTAL DURATION REPORTED: 28 DAYS
     Route: 048
     Dates: start: 20090422, end: 20090517
  11. ELTROMBOPAG [Suspect]
     Route: 048
     Dates: start: 20090518, end: 20090519

REACTIONS (4)
  - ABDOMINAL DISCOMFORT [None]
  - GASTROINTESTINAL HAEMORRHAGE [None]
  - GENERAL PHYSICAL HEALTH DETERIORATION [None]
  - PERITONITIS BACTERIAL [None]
